FAERS Safety Report 10490857 (Version 1)
Quarter: 2014Q4

REPORT INFORMATION
  Report Type: Spontaneous
  Country: US (occurrence: US)
  Receive Date: 20141002
  Receipt Date: 20141002
  Transmission Date: 20150528
  Serious: No
  Sender: FDA-Public Use
  Company Number: US-GLAXOSMITHKLINE-A1042722A

PATIENT
  Age: 34 Year
  Sex: Female
  Weight: 72.7 kg

DRUGS (2)
  1. ADVAIR HFA [Suspect]
     Active Substance: FLUTICASONE PROPIONATE\SALMETEROL XINAFOATE
     Indication: RESPIRATORY DISORDER
     Route: 065
     Dates: start: 20100813
  2. VENTOLIN [Suspect]
     Active Substance: ALBUTEROL SULFATE
     Indication: RESPIRATORY DISORDER
     Route: 065
     Dates: start: 20100813

REACTIONS (2)
  - Live birth [Unknown]
  - Exposure during pregnancy [Unknown]
